FAERS Safety Report 6097197-7 (Version None)
Quarter: 2009Q1

REPORT INFORMATION
  Report Type: 
  Country: None (occurrence: None)
  Receive Date: 20090227
  Receipt Date: 20090220
  Transmission Date: 20090719
  Serious: Yes (Hospitalization)
  Sender: FDA-Public Use
  Company Number: B0548128A

PATIENT
  Age: 69 Year
  Sex: Female
  Weight: 75 kg

DRUGS (1)
  1. ARIXTRA [Suspect]
     Dosage: 2.5MG PER DAY
     Route: 058
     Dates: start: 20081001

REACTIONS (3)
  - ABDOMINAL PAIN UPPER [None]
  - LOSS OF CONSCIOUSNESS [None]
  - SPLENIC HAEMORRHAGE [None]
